FAERS Safety Report 8181601-4 (Version None)
Quarter: 2012Q1

REPORT INFORMATION
  Report Type: 
  Country: None (occurrence: None)
  Receive Date: 20120301
  Receipt Date: 20120301
  Transmission Date: 20120608
  Serious: Yes (Hospitalization)
  Sender: FDA-Public Use
  Company Number: None

PATIENT
  Sex: Male
  Weight: 89.09 kg

DRUGS (1)
  1. ERBITUX [Suspect]
     Dates: start: 20120131

REACTIONS (1)
  - RADIATION OESOPHAGITIS [None]
